FAERS Safety Report 7465725-2 (Version None)
Quarter: 2011Q2

REPORT INFORMATION
  Report Type: 
  Country: None (occurrence: None)
  Receive Date: 20110509
  Receipt Date: 20110502
  Transmission Date: 20111010
  Serious: Yes (Other)
  Sender: FDA-Public Use
  Company Number: B0717841A

PATIENT
  Sex: Male
  Weight: 8 kg

DRUGS (1)
  1. RANITIDINE [Suspect]
     Indication: GASTROOESOPHAGEAL REFLUX DISEASE
     Dosage: 45MG PER DAY
     Route: 048
     Dates: start: 20110325, end: 20110331

REACTIONS (1)
  - ALANINE AMINOTRANSFERASE INCREASED [None]
